FAERS Safety Report 5748625-5 (Version None)
Quarter: 2008Q2

REPORT INFORMATION
  Report Type: 
  Country: None (occurrence: None)
  Receive Date: 20080523
  Receipt Date: 20080515
  Transmission Date: 20081010
  Serious: Yes (Other)
  Sender: FDA-Public Use
  Company Number: GB-PFIZER INC-2008043079

PATIENT
  Sex: Male

DRUGS (1)
  1. CAMPTO [Suspect]
     Route: 042

REACTIONS (1)
  - MANIA [None]
